FAERS Safety Report 9622387 (Version 1)
Quarter: 2013Q4

REPORT INFORMATION
  Report Type: Spontaneous
  Country: US (occurrence: US)
  Receive Date: 20131015
  Receipt Date: 20131015
  Transmission Date: 20140711
  Serious: No
  Sender: FDA-Public Use
  Company Number: US-PURDUE-USA-2012-0086271

PATIENT
  Sex: Female

DRUGS (1)
  1. BUTRANS [Suspect]
     Indication: PAIN
     Dosage: 20 MCG/HR, EVERY 5 DAYS
     Route: 062
     Dates: start: 201201, end: 201204

REACTIONS (6)
  - Application site haemorrhage [Recovered/Resolved]
  - Application site discolouration [Recovered/Resolved]
  - Inappropriate schedule of drug administration [Unknown]
  - Application site pruritus [Recovered/Resolved]
  - Application site erosion [Recovered/Resolved]
  - Application site erythema [Unknown]
